FAERS Safety Report 4803015-4 (Version None)
Quarter: 2005Q4

REPORT INFORMATION
  Report Type: 
  Country: None (occurrence: None)
  Receive Date: 20051017
  Receipt Date: 20051017
  Transmission Date: 20060501
  Serious: Yes (Hospitalization)
  Sender: FDA-Public Use
  Company Number: None

PATIENT
  Age: 63 Year
  Sex: Male

DRUGS (5)
  1. VORICONAZOLE [Suspect]
     Indication: ASPERGILLOSIS
     Dosage: 200 MG PO BID
     Route: 048
     Dates: start: 20050715, end: 20050722
  2. BUDESONIDE INHALATION [Concomitant]
  3. CHLORPHENIRAMINE MALEATE [Concomitant]
  4. GOODY POWDER [Concomitant]
  5. SUPER STRENGTH BLUE EMU [Concomitant]

REACTIONS (4)
  - MYALGIA [None]
  - PANIC ATTACK [None]
  - PHOTOSENSITIVITY REACTION [None]
  - SUNBURN [None]
